FAERS Safety Report 6905695-6 (Version None)
Quarter: 2010Q3

REPORT INFORMATION
  Report Type: 
  Country: None (occurrence: None)
  Receive Date: 20100804
  Receipt Date: 20100722
  Transmission Date: 20110219
  Serious: Yes (Hospitalization)
  Sender: FDA-Public Use
  Company Number: US-BAYER-201027936NA

PATIENT
  Sex: Male

DRUGS (1)
  1. SORAFENIB [Suspect]
     Indication: OESOPHAGEAL CARCINOMA
     Dosage: TOTAL DAILY DOSE: 400 MG  UNIT DOSE: 200 MG
     Route: 048
     Dates: start: 20100222, end: 20100624

REACTIONS (5)
  - CHILLS [None]
  - DEHYDRATION [None]
  - EMPYEMA [None]
  - OESOPHAGEAL FISTULA [None]
  - SINUS TACHYCARDIA [None]
